FAERS Safety Report 15317586 (Version 1)
Quarter: 2018Q3

REPORT INFORMATION
  Report Type: Spontaneous
  Country: PK (occurrence: PK)
  Receive Date: 20180824
  Receipt Date: 20180824
  Transmission Date: 20181010
  Serious: Yes (Other)
  Sender: FDA-Public Use
  Company Number: PK-BAUSCH-BL-2018-023173

PATIENT
  Age: 53 Year
  Sex: Female

DRUGS (2)
  1. SOFOSBUVIR [Suspect]
     Active Substance: SOFOSBUVIR
     Indication: HEPATITIS C VIRUS TEST POSITIVE
     Dosage: FOR 6 MONTHS
     Route: 065
     Dates: start: 2016, end: 2016
  2. RIBAVIRIN. [Suspect]
     Active Substance: RIBAVIRIN
     Indication: HEPATITIS C VIRUS TEST POSITIVE
     Dosage: FOR 6 MONTHS
     Route: 065
     Dates: start: 2016, end: 2016

REACTIONS (2)
  - Viral load increased [Recovered/Resolved]
  - Platelet count abnormal [Unknown]

NARRATIVE: CASE EVENT DATE: 2016
